FAERS Safety Report 14957164 (Version 1)
Quarter: 2018Q2

REPORT INFORMATION
  Report Type: Spontaneous
  Country: US (occurrence: US)
  Receive Date: 20180531
  Receipt Date: 20180531
  Transmission Date: 20180711
  Serious: No
  Sender: FDA-Public Use
  Company Number: US-BAYER-2018-100990

PATIENT
  Age: 12 Year
  Sex: Male

DRUGS (3)
  1. CLARITIN [Suspect]
     Active Substance: LORATADINE
     Dosage: 2 TEASPOONS, QD
     Route: 048
     Dates: start: 2018
  2. CLARITIN [Suspect]
     Active Substance: LORATADINE
     Dosage: 2 TEASPOONS, QD
     Route: 048
     Dates: start: 201804
  3. CLARITIN [Suspect]
     Active Substance: LORATADINE
     Dosage: 2 TEASPOONS, QD
     Route: 048
     Dates: start: 20180525, end: 20180525

REACTIONS (1)
  - Extra dose administered [Recovered/Resolved]

NARRATIVE: CASE EVENT DATE: 20180525
